FAERS Safety Report 9059454 (Version 3)
Quarter: 2014Q2

REPORT INFORMATION
  Report Type: Spontaneous
  Country: FR (occurrence: FR)
  Receive Date: 20130212
  Receipt Date: 20140416
  Transmission Date: 20141212
  Serious: Yes (Hospitalization, Other)
  Sender: FDA-Public Use
  Company Number: FR-AMGEN-FRASP2013008695

PATIENT
  Age: 80 Year
  Sex: Female
  Weight: 50 kg

DRUGS (11)
  1. ARANESP [Suspect]
     Indication: ANAEMIA
     Dosage: 150 MUG, QMO
     Route: 058
     Dates: start: 201202, end: 201206
  2. MIRCERA [Suspect]
     Indication: ANAEMIA
     Dosage: 30 MUG, QMO
     Route: 065
     Dates: start: 201101, end: 201202
  3. BISOPROLOL                         /00802602/ [Concomitant]
  4. AMLOR [Concomitant]
  5. COAPROVEL [Concomitant]
  6. KARDEGIC [Concomitant]
  7. SPECIAFOLDINE [Concomitant]
  8. DAFALGAN [Concomitant]
  9. VENOFER [Concomitant]
  10. PRIVIGEN                           /00025201/ [Concomitant]
  11. IRON [Concomitant]
     Indication: SUPPLEMENTATION THERAPY

REACTIONS (2)
  - Anti-erythropoietin antibody positive [Unknown]
  - Aplasia pure red cell [Unknown]
